FAERS Safety Report 23361283 (Version 1)
Quarter: 2024Q1

REPORT INFORMATION
  Report Type: Spontaneous
  Country: CN (occurrence: CN)
  Receive Date: 20240103
  Receipt Date: 20240103
  Transmission Date: 20240410
  Serious: Yes (Other)
  Sender: FDA-Public Use
  Company Number: CN-ALCON LABORATORIES-ALC2023CN005934

PATIENT
  Age: 7 Year
  Sex: Female

DRUGS (1)
  1. CYCLOGYL [Suspect]
     Active Substance: CYCLOPENTOLATE HYDROCHLORIDE
     Indication: Refraction disorder
     Dosage: 1 DROP, TID (ONCE EVERY 10 MINUTES, 3 TIMES, 1 DROP EACH TIME)
     Route: 047
     Dates: start: 20230712, end: 20230712

REACTIONS (1)
  - Delirium [Recovered/Resolved]

NARRATIVE: CASE EVENT DATE: 20230712
